FAERS Safety Report 6667430-9 (Version None)
Quarter: 2010Q2

REPORT INFORMATION
  Report Type: 
  Country: None (occurrence: None)
  Receive Date: 20100405
  Receipt Date: 20100315
  Transmission Date: 20101027
  Serious: Yes (Hospitalization, Other)
  Sender: FDA-Public Use
  Company Number: US-BAYER-US-2006-001356

PATIENT
  Age: 11 Year
  Sex: Male

DRUGS (23)
  1. CAMPATH [Suspect]
     Indication: RENAL TRANSPLANT
     Dosage: UNIT DOSE: 0.3 MG/KG
     Route: 042
     Dates: start: 20060117, end: 20060117
  2. PROGRAF [Concomitant]
     Dates: start: 20060119
  3. SOLU-MEDROL [Concomitant]
     Indication: PROPHYLAXIS
     Dosage: 10 MG/KG, (MAX-500 MG)
     Route: 042
     Dates: start: 20060101
  4. ACETAMINOPHEN [Concomitant]
     Indication: PROPHYLAXIS
     Dosage: 15 MG/KG (MAX-650 MG)
     Dates: start: 20060101
  5. BENADRYL [Concomitant]
     Indication: PROPHYLAXIS
     Dosage: 1 MG/KG (MAX-50MG)
     Dates: start: 20060101
  6. PREDNISONE TAB [Concomitant]
     Dates: start: 20060117, end: 20060120
  7. PREDNISONE TAB [Concomitant]
  8. NYSTATIN [Concomitant]
     Dates: start: 20060118
  9. ZANTAC [Concomitant]
     Dates: start: 20060118, end: 20060131
  10. BACTRIM [Concomitant]
     Dates: start: 20060118
  11. GANCICLOVIR [Concomitant]
     Dates: start: 20060117, end: 20060202
  12. CEFAZOLIN [Concomitant]
     Dates: start: 20060118, end: 20060120
  13. MAGNESIUM SULFATE [Concomitant]
     Dates: start: 20060118, end: 20060119
  14. LASIX [Concomitant]
     Dates: start: 20060119, end: 20060119
  15. HYDRALAZINE HCL [Concomitant]
     Dates: start: 20060119, end: 20060119
  16. COTRIM [Concomitant]
  17. FERROUS SULFATE TAB [Concomitant]
  18. OXYBUTYNIN [Concomitant]
  19. SIROLIMUS [Concomitant]
  20. VALCYTE [Concomitant]
  21. MEPRON [Concomitant]
  22. RANITIDINE [Concomitant]
  23. FERROUS SULFATE TAB [Concomitant]

REACTIONS (5)
  - BLOOD POTASSIUM DECREASED [None]
  - GRAND MAL CONVULSION [None]
  - HYPERTENSION [None]
  - HYPONATRAEMIA [None]
  - PYELONEPHRITIS [None]
